FAERS Safety Report 10330074 (Version 1)
Quarter: 2014Q3

REPORT INFORMATION
  Report Type: Spontaneous
  Country: US (occurrence: US)
  Receive Date: 20140721
  Receipt Date: 20140721
  Transmission Date: 20150326
  Serious: No
  Sender: FDA-Public Use
  Company Number: US-009507513-1407USA008539

PATIENT
  Sex: Female

DRUGS (1)
  1. NASONEX [Suspect]
     Active Substance: MOMETASONE FUROATE
     Indication: NASAL POLYPS
     Dosage: 1 SPRAY IN EACH NOSTRIL TWICE A DAY
     Route: 045
     Dates: start: 2012

REACTIONS (5)
  - Nasal discomfort [Unknown]
  - Product packaging quantity issue [Unknown]
  - Product container seal issue [Unknown]
  - Underdose [Unknown]
  - Accidental exposure to product [Unknown]
